FAERS Safety Report 21302316 (Version 4)
Quarter: 2022Q4

REPORT INFORMATION
  Report Type: Spontaneous
  Country: JP (occurrence: JP)
  Receive Date: 20220907
  Receipt Date: 20221202
  Transmission Date: 20230112
  Serious: Yes (Hospitalization)
  Sender: FDA-Public Use
  Company Number: JP-ELI_LILLY_AND_COMPANY-JP202209000311

PATIENT
  Age: 71 Year
  Sex: Male

DRUGS (2)
  1. CYRAMZA [Suspect]
     Active Substance: RAMUCIRUMAB
     Indication: Lung neoplasm malignant
     Dosage: UNK, CYCLICAL
     Route: 041
     Dates: start: 20220704
  2. DOCETAXEL [Concomitant]
     Active Substance: DOCETAXEL
     Indication: Lung neoplasm malignant
     Dosage: UNK, CYCLICAL
     Dates: start: 20220704

REACTIONS (1)
  - Interstitial lung disease [Recovering/Resolving]

NARRATIVE: CASE EVENT DATE: 20220827
